FAERS Safety Report 9429519 (Version 1)
Quarter: 2013Q3

REPORT INFORMATION
  Report Type: Spontaneous
  Country: US (occurrence: US)
  Receive Date: 20130730
  Receipt Date: 20130730
  Transmission Date: 20140515
  Serious: No
  Sender: FDA-Public Use
  Company Number: US-ABBOTT-13P-163-1064404-00

PATIENT
  Sex: Female

DRUGS (4)
  1. NIASPAN (COATED) [Suspect]
     Indication: HIGH DENSITY LIPOPROTEIN DECREASED
     Dates: end: 2011
  2. NIASPAN (COATED) [Suspect]
     Indication: LOW DENSITY LIPOPROTEIN INCREASED
  3. NIASPAN (COATED) [Suspect]
     Dates: start: 2010
  4. ASPIRIN [Concomitant]
     Indication: HEADACHE

REACTIONS (3)
  - Feeling abnormal [Unknown]
  - Pain [Recovering/Resolving]
  - Erythema [Recovered/Resolved]
